FAERS Safety Report 11625761 (Version 1)
Quarter: 2015Q4

REPORT INFORMATION
  Report Type: Spontaneous
  Country: BR (occurrence: BR)
  Receive Date: 20151013
  Receipt Date: 20151013
  Transmission Date: 20160304
  Serious: Yes (Hospitalization)
  Sender: FDA-Public Use
  Company Number: BR-B.I. PHARMACEUTICALS,INC./RIDGEFIELD-2015-BI-55421BR

PATIENT
  Age: 64 Year
  Sex: Female
  Weight: 96 kg

DRUGS (6)
  1. HUMALOG [Concomitant]
     Active Substance: INSULIN LISPRO
     Indication: TYPE 2 DIABETES MELLITUS
     Route: 030
     Dates: start: 2000
  2. LOSARTANA + HIDROCLOROTIAZIDA + ATENOLOL [Concomitant]
     Indication: HYPERTENSION
     Dosage: DOSE PER APPLICATION + DAILY DOSE: 50/50/50 MG
     Route: 048
     Dates: start: 2000
  3. JARDIANCE [Suspect]
     Active Substance: EMPAGLIFLOZIN
     Indication: TYPE 2 DIABETES MELLITUS
  4. JARDIANCE [Suspect]
     Active Substance: EMPAGLIFLOZIN
     Indication: DIABETES MELLITUS MANAGEMENT
     Dosage: 25 MG
     Route: 048
     Dates: start: 20150817, end: 20150818
  5. LANTUS [Concomitant]
     Active Substance: INSULIN GLARGINE
     Indication: TYPE 2 DIABETES MELLITUS
     Dosage: 50 U
     Route: 030
     Dates: start: 2000
  6. PURAN [Concomitant]
     Active Substance: LEVOTHYROXINE SODIUM
     Indication: HYPOTHYROIDISM
     Dosage: 50 MG
     Route: 048
     Dates: start: 2007

REACTIONS (6)
  - Back pain [Recovered/Resolved]
  - Renal pain [Recovered/Resolved]
  - Urinary tract infection [Recovered/Resolved]
  - Fluid retention [Recovered/Resolved]
  - Micturition urgency [Recovered/Resolved]
  - Renal disorder [Unknown]

NARRATIVE: CASE EVENT DATE: 20150817
